FAERS Safety Report 10345360 (Version 2)
Quarter: 2014Q3

REPORT INFORMATION
  Report Type: Report from Study
  Country: JP (occurrence: JP)
  Receive Date: 20140728
  Receipt Date: 20140805
  Transmission Date: 20150326
  Serious: Yes (Hospitalization)
  Sender: FDA-Public Use
  Company Number: JP-CELGENEUS-087-21660-14074080

PATIENT
  Age: 72 Year
  Sex: Male
  Weight: 54 kg

DRUGS (13)
  1. BFLUID [Concomitant]
     Active Substance: AMINO ACIDS\DEXTROSE\ELECTROLYTES NOS\VITAMINS
     Indication: PRODUCT USED FOR UNKNOWN INDICATION
     Route: 041
     Dates: start: 20140717
  2. WARFARIN [Concomitant]
     Active Substance: WARFARIN
     Indication: PULMONARY ARTERY THROMBOSIS
     Dosage: 1 MILLIGRAM
     Route: 048
     Dates: start: 20140508
  3. CRAVIT [Concomitant]
     Active Substance: LEVOFLOXACIN
     Indication: WHITE BLOOD CELL COUNT INCREASED
     Route: 048
     Dates: start: 20140717
  4. WARFARIN [Concomitant]
     Active Substance: WARFARIN
     Indication: PELVIC VENOUS THROMBOSIS
  5. PRIMPERAN [Concomitant]
     Active Substance: METOCLOPRAMIDE HYDROCHLORIDE
     Indication: VOMITING
     Route: 065
     Dates: start: 20140717
  6. CRAVIT [Concomitant]
     Active Substance: LEVOFLOXACIN
     Indication: PYREXIA
  7. ITOPRIDE HYDROCHLORIDE [Concomitant]
     Active Substance: ITOPRIDE HYDROCHLORIDE
     Indication: DYSPEPSIA
     Dosage: 150 MILLIGRAM
     Route: 048
  8. ABRAXANE [Suspect]
     Active Substance: PACLITAXEL
     Indication: METASTATIC GASTRIC CANCER
     Route: 041
     Dates: start: 20140702
  9. ABRAXANE [Suspect]
     Active Substance: PACLITAXEL
     Route: 041
     Dates: start: 20140723
  10. NEXIUM [Concomitant]
     Active Substance: ESOMEPRAZOLE MAGNESIUM
     Indication: DYSPEPSIA
     Dosage: 20 MILLIGRAM
     Route: 048
  11. PACKED RED BLOOD CELLS [Concomitant]
     Active Substance: HUMAN RED BLOOD CELL
     Indication: HAEMOGLOBIN DECREASED
     Route: 041
     Dates: start: 20140723, end: 20140723
  12. PACKED RED BLOOD CELLS [Concomitant]
     Active Substance: HUMAN RED BLOOD CELL
     Indication: PYREXIA
  13. FESIN [Concomitant]
     Active Substance: IRON SUCROSE
     Indication: PRODUCT USED FOR UNKNOWN INDICATION
     Route: 065
     Dates: start: 20140718

REACTIONS (1)
  - Urinary retention [Recovered/Resolved]

NARRATIVE: CASE EVENT DATE: 20140717
